FAERS Safety Report 9769342 (Version 1)
Quarter: 2013Q4

REPORT INFORMATION
  Report Type: Spontaneous
  Country: BE (occurrence: BE)
  Receive Date: 20131218
  Receipt Date: 20131218
  Transmission Date: 20140711
  Serious: Yes (Hospitalization, Other)
  Sender: FDA-Public Use
  Company Number: BE-MERCK-1312BEL004232

PATIENT
  Age: 64 Year
  Sex: Male

DRUGS (4)
  1. CASPOFUNGIN ACETATE [Suspect]
     Dosage: 70 MG, QD
     Route: 042
     Dates: start: 20131125, end: 20131125
  2. ZOROXIN [Concomitant]
     Indication: PROPHYLAXIS
     Dosage: UNK
     Route: 048
     Dates: start: 20131128
  3. LASIX (FUROSEMIDE) [Concomitant]
     Indication: POLYURIA
     Dosage: UNK
  4. ASAFLOW [Concomitant]
     Indication: PROPHYLAXIS
     Dosage: UNK

REACTIONS (3)
  - Hepatic encephalopathy [Unknown]
  - Encephalopathy [Unknown]
  - Pneumonia [Unknown]
